FAERS Safety Report 9119965 (Version 1)
Quarter: 2013Q1

REPORT INFORMATION
  Report Type: Spontaneous
  Country: US (occurrence: US)
  Receive Date: 20130226
  Receipt Date: 20130226
  Transmission Date: 20140127
  Serious: Yes (Other)
  Sender: FDA-Public Use
  Company Number: US-MYLANLABS-2013S1003603

PATIENT
  Age: 61 Year
  Sex: Female

DRUGS (2)
  1. FENTANYL TRANSDERMAL SYSTEM [Suspect]
     Indication: BACK PAIN
     Dosage: Q3D
     Route: 062
     Dates: start: 201203, end: 201205
  2. CYCLOBENZAPRINE [Concomitant]
     Indication: MUSCLE SPASMS
     Route: 048

REACTIONS (5)
  - Overdose [Recovered/Resolved]
  - Incorrect drug administration duration [Recovered/Resolved]
  - Drug effect increased [Recovered/Resolved]
  - Somnolence [Recovered/Resolved]
  - Incorrect drug dosage form administered [None]
